FAERS Safety Report 6155202-3 (Version None)
Quarter: 2009Q2

REPORT INFORMATION
  Report Type: 
  Country: None (occurrence: None)
  Receive Date: 20090410
  Receipt Date: 20090410
  Transmission Date: 20091009
  Serious: Yes (Other)
  Sender: FDA-Public Use
  Company Number: None

PATIENT
  Age: 43 Year
  Sex: Female
  Weight: 100.6985 kg

DRUGS (4)
  1. RISPERIDONE [Suspect]
     Indication: SCHIZOPHRENIA
     Dosage: 8 MG PO QHS 6 WEEKS (EARLY AUG - MID SEPT 2008)
     Route: 048
     Dates: start: 20080801, end: 20080901
  2. GLYBURIDE AND METFORMIN HCL [Concomitant]
  3. LISINOPRIL [Concomitant]
  4. AVANDIA [Concomitant]

REACTIONS (2)
  - DIZZINESS [None]
  - DRUG EFFECT DECREASED [None]
